FAERS Safety Report 8875741 (Version 1)
Quarter: 2012Q4

REPORT INFORMATION
  Report Type: Report from Study
  Country: JP (occurrence: JP)
  Receive Date: 20121030
  Receipt Date: 20121030
  Transmission Date: 20130627
  Serious: Yes (Hospitalization)
  Sender: FDA-Public Use
  Company Number: JP-JNJFOC-20111202041

PATIENT
  Age: 60 Year
  Sex: Female
  Weight: 68 kg

DRUGS (11)
  1. SIMPONI [Suspect]
     Indication: RHEUMATOID ARTHRITIS
     Route: 058
     Dates: start: 20111020
  2. METHOTREXATE [Concomitant]
     Indication: RHEUMATOID ARTHRITIS
     Dates: end: 20110912
  3. METHOTREXATE [Concomitant]
     Indication: RHEUMATOID ARTHRITIS
     Dates: start: 20110913
  4. METHOTREXATE [Concomitant]
     Indication: RHEUMATOID ARTHRITIS
     Dates: start: 20111021, end: 20111024
  5. METHYLPREDNISOLONE [Concomitant]
     Indication: RHEUMATOID ARTHRITIS
  6. MELOXICAM [Concomitant]
     Indication: RHEUMATOID ARTHRITIS
  7. FOLIC ACID [Concomitant]
     Route: 048
  8. POLAPREZINC [Concomitant]
     Indication: PROPHYLAXIS
     Route: 048
  9. LANZOPRAZOLE [Concomitant]
     Route: 048
  10. OLMESARTAN [Concomitant]
     Route: 048
  11. PRAVASTATIN [Concomitant]
     Route: 048

REACTIONS (2)
  - Fall [Recovering/Resolving]
  - Eye injury [Unknown]
